FAERS Safety Report 21823873 (Version 1)
Quarter: 2023Q1

REPORT INFORMATION
  Report Type: Spontaneous
  Country: US (occurrence: US)
  Receive Date: 20230105
  Receipt Date: 20230105
  Transmission Date: 20230418
  Serious: No
  Sender: FDA-Public Use
  Company Number: US-CORIUM, INC.-2022COR000175

PATIENT

DRUGS (1)
  1. ADLARITY [Suspect]
     Active Substance: DONEPEZIL HYDROCHLORIDE
     Indication: Dementia Alzheimer^s type
     Dosage: 10 MILLIGRAM, AS DIRECTED
     Route: 061
     Dates: start: 20221017

REACTIONS (1)
  - Application site irritation [Unknown]

NARRATIVE: CASE EVENT DATE: 20221024
